FAERS Safety Report 8829683 (Version 1)
Quarter: 2012Q4

REPORT INFORMATION
  Report Type: 
  Country: US (occurrence: US)
  Receive Date: 20121008
  Receipt Date: 20121008
  Transmission Date: 20130627
  Serious: Yes (Hospitalization)
  Sender: FDA-Public Use
  Company Number: US-SANOFI-AVENTIS-2012SA073107

PATIENT
  Age: 8 Year
  Sex: Female
  Weight: 54.43 kg

DRUGS (1)
  1. DDAVP [Suspect]
     Indication: VON WILLEBRAND^S DISEASE
     Route: 065

REACTIONS (2)
  - Renal failure [Recovered/Resolved]
  - Loss of consciousness [Recovered/Resolved]
